FAERS Safety Report 6752743-2 (Version None)
Quarter: 2010Q2

REPORT INFORMATION
  Report Type: 
  Country: None (occurrence: None)
  Receive Date: 20100528
  Receipt Date: 20100517
  Transmission Date: 20101027
  Serious: Yes (Hospitalization)
  Sender: FDA-Public Use
  Company Number: 2009AC000346

PATIENT
  Age: 75 Year
  Sex: Male

DRUGS (68)
  1. DIGOXIN [Suspect]
     Dosage: .125 MG;QD;PO
     Route: 048
     Dates: start: 20050721, end: 20080721
  2. DIGOXIN [Suspect]
     Indication: HEART RATE INCREASED
     Dosage: 0.125 MG;QD;PO
     Route: 048
     Dates: start: 20070904, end: 20071003
  3. DIGOXIN [Suspect]
     Indication: HEART RATE INCREASED
     Dosage: 0.125 MG;QD;PO
     Route: 048
     Dates: start: 20050907, end: 20051004
  4. DIGOXIN [Suspect]
     Indication: HEART RATE INCREASED
     Dosage: 0.0625 MG;QD;PO
     Route: 048
     Dates: start: 20051005, end: 20070101
  5. COREG [Concomitant]
  6. PROPOXYPHENE [Concomitant]
  7. WARFARIN SODIUM [Concomitant]
  8. FUROSEMIDE [Concomitant]
  9. TORSEMIDE [Concomitant]
  10. JANTOVEN [Concomitant]
  11. METOPROLOL TARTRATE [Concomitant]
  12. LISINOPRIL [Concomitant]
  13. ASPIRIN [Concomitant]
  14. ZOCOR [Concomitant]
  15. ALBUTEROL [Concomitant]
  16. SYNTHROID [Concomitant]
  17. PROTONIX [Concomitant]
  18. K-DUR [Concomitant]
  19. PRINIVIL [Concomitant]
  20. PRILOSEC [Concomitant]
  21. DUONEB [Concomitant]
  22. FERROUS SULFATE TAB [Concomitant]
  23. PREDNISONE [Concomitant]
  24. ALDACTONE [Concomitant]
  25. FLORINEF [Concomitant]
  26. TESSALON [Concomitant]
  27. NIFEREX FORTE [Concomitant]
  28. .............. [Concomitant]
  29. NIFEREX [Concomitant]
  30. COUMADIN [Concomitant]
  31. ALLOPURINOL [Concomitant]
  32. ZOCOR [Concomitant]
  33. NEBULIZER [Concomitant]
  34. DEMADEX [Concomitant]
  35. SIMVASTATIN [Concomitant]
  36. LEVAQUIN [Concomitant]
  37. LOPRESSOR [Concomitant]
  38. CEPHALEXIN [Concomitant]
  39. ROBITUSSIN DM [Concomitant]
  40. EFUDEX [Concomitant]
  41. POLYETHYLENE GLYCOL [Concomitant]
  42. ANU-CORT CREAM [Concomitant]
  43. MIRALAX [Concomitant]
  44. NITROGLYCERIN [Concomitant]
  45. COMBIVENT [Concomitant]
  46. CRESTOR [Concomitant]
  47. CARTIA XT [Concomitant]
  48. POTASSIUM CHLORIDE [Concomitant]
  49. LEVOXYL [Concomitant]
  50. IRON [Concomitant]
  51. FLAGYL [Concomitant]
  52. ANCEF [Concomitant]
  53. LORTAB [Concomitant]
  54. SOLU-MEDROL [Concomitant]
  55. HYDROCODONE BITARTRATE AND ACETAMINOPHEN [Concomitant]
  56. SPIRONOLACTONE [Concomitant]
  57. COLACE [Concomitant]
  58. AMIODARONE HYDROCHLORIDE [Concomitant]
  59. FLUDROCORT [Concomitant]
  60. LEXAPRO [Concomitant]
  61. ZOLOFT [Concomitant]
  62. TYLENOL [Concomitant]
  63. ADVAIR DISKUS 100/50 [Concomitant]
  64. CITALOPRAM [Concomitant]
  65. ZAROXOLYN [Concomitant]
  66. PREVACID [Concomitant]
  67. MEGACE [Concomitant]
  68. PNEUMOVAC [Concomitant]

REACTIONS (63)
  - ABDOMINAL DISTENSION [None]
  - ANXIETY DISORDER [None]
  - AORTIC STENOSIS [None]
  - AORTIC VALVE INCOMPETENCE [None]
  - AORTIC VALVE STENOSIS [None]
  - APPENDICITIS [None]
  - ASTHENIA [None]
  - ATELECTASIS [None]
  - ATRIAL FIBRILLATION [None]
  - BREAST TENDERNESS [None]
  - BRONCHITIS [None]
  - BUNDLE BRANCH BLOCK LEFT [None]
  - CARDIAC FAILURE CONGESTIVE [None]
  - CARDIAC VALVE DISEASE [None]
  - CAROTID ARTERY STENOSIS [None]
  - CELLULITIS [None]
  - CEREBRAL ATROPHY [None]
  - CHOLELITHIASIS [None]
  - CONDUCTION DISORDER [None]
  - CORONARY ARTERY DISEASE [None]
  - DEPRESSION [None]
  - DIZZINESS [None]
  - DRUG INTOLERANCE [None]
  - DYSPHAGIA [None]
  - ECONOMIC PROBLEM [None]
  - EJECTION FRACTION DECREASED [None]
  - EMPHYSEMA [None]
  - FALL [None]
  - FATIGUE [None]
  - FEELING DRUNK [None]
  - FLATULENCE [None]
  - GAIT DISTURBANCE [None]
  - GOUT [None]
  - GYNAECOMASTIA [None]
  - HAEMOGLOBIN DECREASED [None]
  - HEART RATE INCREASED [None]
  - HERPES ZOSTER [None]
  - HYDROPNEUMOTHORAX [None]
  - HYPERGLYCAEMIA [None]
  - HYPERLIPIDAEMIA [None]
  - HYPOAESTHESIA [None]
  - HYPOKALAEMIA [None]
  - HYPOTENSION [None]
  - INJURY [None]
  - ISCHAEMIC CARDIOMYOPATHY [None]
  - LEFT ATRIAL DILATATION [None]
  - MALAISE [None]
  - MITRAL VALVE INCOMPETENCE [None]
  - MYOCARDIAL INFARCTION [None]
  - NAUSEA [None]
  - OESOPHAGEAL ULCER [None]
  - PLEURAL EFFUSION [None]
  - PNEUMONIA [None]
  - POSTOPERATIVE RESPIRATORY DISTRESS [None]
  - RENAL FAILURE CHRONIC [None]
  - RESPIRATORY SYNCYTIAL VIRUS TEST POSITIVE [None]
  - RIB EXCISION [None]
  - RIGHT ATRIAL DILATATION [None]
  - SYNCOPE [None]
  - THROMBOPHLEBITIS [None]
  - TRICUSPID VALVE INCOMPETENCE [None]
  - TYPE 2 DIABETES MELLITUS [None]
  - UPPER GASTROINTESTINAL HAEMORRHAGE [None]
